FAERS Safety Report 9502559 (Version 1)
Quarter: 2013Q3

REPORT INFORMATION
  Report Type: Spontaneous
  Country: US (occurrence: US)
  Receive Date: 20130906
  Receipt Date: 20130906
  Transmission Date: 20140515
  Serious: Yes (Hospitalization)
  Sender: FDA-Public Use
  Company Number: US-BAYER-2013-107258

PATIENT
  Age: 33 Year
  Sex: Female

DRUGS (14)
  1. YAZ [Suspect]
  2. GIANVI [Suspect]
  3. DILAUDID [Concomitant]
  4. LIDODERM [Concomitant]
  5. VITAMIN C [Concomitant]
  6. COLAZAL [Concomitant]
  7. CALCIUM [Concomitant]
  8. ZYRTEC [Concomitant]
  9. VITAMIN D [Concomitant]
  10. IRON [Concomitant]
  11. NASONEX [Concomitant]
  12. CENTRUM [Concomitant]
  13. PREDNISONE [Concomitant]
  14. ACIPHEX [Concomitant]

REACTIONS (1)
  - Pulmonary embolism [None]
